FAERS Safety Report 15222356 (Version 1)
Quarter: 2018Q3

REPORT INFORMATION
  Report Type: Spontaneous
  Country: US (occurrence: US)
  Receive Date: 20180731
  Receipt Date: 20180731
  Transmission Date: 20181010
  Serious: Yes (Death, Other)
  Sender: FDA-Public Use
  Company Number: US-MYLANLABS-2018M1057173

PATIENT
  Age: 61 Year
  Sex: Male

DRUGS (1)
  1. AMIODARONE [Suspect]
     Active Substance: AMIODARONE
     Indication: CARDIOMYOPATHY
     Route: 065

REACTIONS (6)
  - Mental impairment [Unknown]
  - Ventricular tachycardia [Fatal]
  - Paradoxical drug reaction [Fatal]
  - Acute kidney injury [Unknown]
  - Thyrotoxic crisis [Fatal]
  - Tachypnoea [Unknown]
